FAERS Safety Report 24530545 (Version 1)
Quarter: 2024Q4

REPORT INFORMATION
  Report Type: Spontaneous
  Country: US (occurrence: US)
  Receive Date: 20241021
  Receipt Date: 20241021
  Transmission Date: 20250115
  Serious: No
  Sender: NOVARTIS
  Company Number: US-002147023-NVSC2024US204667

PATIENT
  Age: 65 Year
  Sex: Female

DRUGS (4)
  1. KESIMPTA [Suspect]
     Active Substance: OFATUMUMAB
     Indication: Product used for unknown indication
     Dosage: 20 MG, QD (INJECTION)
     Route: 065
     Dates: start: 20241014
  2. KESIMPTA [Suspect]
     Active Substance: OFATUMUMAB
     Dosage: 20 MG, QD
     Route: 065
     Dates: start: 20241015
  3. KESIMPTA [Suspect]
     Active Substance: OFATUMUMAB
     Dosage: 20 MG, QD
     Route: 065
     Dates: start: 20241016
  4. KESIMPTA [Suspect]
     Active Substance: OFATUMUMAB
     Dosage: 20 MG, QD
     Route: 065
     Dates: start: 20241017

REACTIONS (3)
  - Hypertension [Unknown]
  - Anxiety [Unknown]
  - Irritability [Unknown]

NARRATIVE: CASE EVENT DATE: 20241018
